FAERS Safety Report 10006236 (Version 2)
Quarter: 2014Q1

REPORT INFORMATION
  Report Type: Report from Study
  Country: US (occurrence: US)
  Receive Date: 20140313
  Receipt Date: 20140326
  Transmission Date: 20141002
  Serious: Yes (Other)
  Sender: FDA-Public Use
  Company Number: US-ROCHE-1359724

PATIENT
  Sex: Female
  Weight: 59.02 kg

DRUGS (6)
  1. ACTEMRA [Suspect]
     Indication: JUVENILE IDIOPATHIC ARTHRITIS
     Dosage: 2 TO 3 INJECTIONS TO DATE
     Route: 058
  2. HEPARIN [Concomitant]
  3. NAPROSYN [Concomitant]
     Dosage: 1 TAB
     Route: 048
  4. METHOTREXATE [Concomitant]
     Dosage: 10 PILLS
     Route: 048
  5. ASPIRIN [Concomitant]
  6. COUMADIN [Concomitant]

REACTIONS (1)
  - Increased tendency to bruise [Not Recovered/Not Resolved]
